FAERS Safety Report 7801455-2 (Version None)
Quarter: 2011Q4

REPORT INFORMATION
  Report Type: 
  Country: None (occurrence: None)
  Receive Date: 20111007
  Receipt Date: 20110926
  Transmission Date: 20120403
  Serious: Yes (Other)
  Sender: FDA-Public Use
  Company Number: FR-JNJFOC-20110910601

PATIENT
  Age: 51 Year
  Sex: Female

DRUGS (6)
  1. REMICADE [Suspect]
     Indication: PRODUCT USED FOR UNKNOWN INDICATION
     Route: 042
     Dates: start: 20110908
  2. REMICADE [Suspect]
     Route: 042
     Dates: start: 20110811
  3. REMICADE [Suspect]
     Route: 042
     Dates: start: 20110725
  4. POLARAMINE [Concomitant]
     Indication: PREMEDICATION
     Route: 065
  5. PROPACETAMOL [Concomitant]
     Indication: PREMEDICATION
     Route: 065
  6. SOLU-MEDROL [Concomitant]
     Indication: PREMEDICATION
     Route: 065

REACTIONS (6)
  - DYSPNOEA [None]
  - PRURITUS [None]
  - ERYTHEMA [None]
  - INFUSION RELATED REACTION [None]
  - VOMITING [None]
  - MALAISE [None]
